FAERS Safety Report 7204783-7 (Version None)
Quarter: 2010Q4

REPORT INFORMATION
  Report Type: 
  Country: None (occurrence: None)
  Receive Date: 20101230
  Receipt Date: 20101220
  Transmission Date: 20110411
  Serious: Yes (Hospitalization)
  Sender: FDA-Public Use
  Company Number: US-WATSON-2010-16523

PATIENT
  Age: 20 Year
  Sex: Male

DRUGS (3)
  1. MONODOX [Suspect]
     Indication: TENOSYNOVITIS
     Dosage: UNK
  2. CEFTRIAXONE [Suspect]
     Indication: TENOSYNOVITIS
     Dosage: SINGLE DOSE
  3. VANCOMYCIN [Suspect]
     Indication: TENOSYNOVITIS
     Dosage: UNK

REACTIONS (2)
  - DRUG RASH WITH EOSINOPHILIA AND SYSTEMIC SYMPTOMS [None]
  - HUMAN HERPESVIRUS 6 INFECTION [None]
